FAERS Safety Report 10242588 (Version 1)
Quarter: 2014Q2

REPORT INFORMATION
  Report Type: Spontaneous
  Country: IT (occurrence: IT)
  Receive Date: 20140617
  Receipt Date: 20140617
  Transmission Date: 20141212
  Serious: Yes (Other)
  Sender: FDA-Public Use
  Company Number: PHHY2014IT072390

PATIENT
  Sex: Male

DRUGS (1)
  1. LORAZEPAM [Suspect]
     Indication: ANXIETY
     Dosage: 15 MG, ONCE/SINGLE
     Route: 048
     Dates: start: 20140509, end: 20140509

REACTIONS (3)
  - Anxiety [Recovered/Resolved]
  - Drug abuse [Recovered/Resolved]
  - Dysphoria [Recovered/Resolved]
